FAERS Safety Report 9461738 (Version 2)
Quarter: 2013Q3

REPORT INFORMATION
  Report Type: Spontaneous
  Country: JP (occurrence: JP)
  Receive Date: 20130816
  Receipt Date: 20130919
  Transmission Date: 20140515
  Serious: Yes (Other)
  Sender: FDA-Public Use
  Company Number: JP-ASTELLAS-2013JP008511

PATIENT
  Age: 69 Year
  Sex: Female

DRUGS (4)
  1. BETANIS [Suspect]
     Indication: HYPERTONIC BLADDER
     Dosage: 50 MG, UID/QD
     Route: 048
     Dates: start: 20121218
  2. TOLEDOMIN [Concomitant]
     Dosage: 12.5 MG, UNKNOWN/D
     Route: 048
  3. METFORMIN HYDROCHLORIDE [Concomitant]
     Dosage: 250 MG, UID/QD
     Route: 048
  4. EQUA [Concomitant]
     Dosage: 50 MG, UID/QD
     Route: 048
     Dates: start: 20130805

REACTIONS (1)
  - Diabetes mellitus inadequate control [Recovering/Resolving]
